FAERS Safety Report 6500151-1 (Version None)
Quarter: 2009Q4

REPORT INFORMATION
  Report Type: 
  Country: None (occurrence: None)
  Receive Date: 20091216
  Receipt Date: 20091209
  Transmission Date: 20100525
  Serious: Yes (Other)
  Sender: FDA-Public Use
  Company Number: JP-WYE-H12609309

PATIENT
  Age: 69 Year
  Sex: Male

DRUGS (1)
  1. ANCARON [Suspect]
     Indication: VENTRICULAR TACHYCARDIA
     Dosage: DOSE AND FREQUENCY NOT SPECIFIED
     Route: 048
     Dates: start: 20060101, end: 20080101

REACTIONS (1)
  - LUNG DISORDER [None]
